FAERS Safety Report 8738879 (Version 2)
Quarter: 2012Q4

REPORT INFORMATION
  Report Type: Report from Study
  Country: JP (occurrence: JP)
  Receive Date: 20120823
  Receipt Date: 20121221
  Transmission Date: 20130627
  Serious: Yes (Other)
  Sender: FDA-Public Use
  Company Number: JP-VERTEX PHARMACEUTICAL INC.-2012-019676

PATIENT
  Age: 64 Year
  Sex: Male

DRUGS (17)
  1. VX-950 (TELAPREVIR) [Suspect]
     Indication: CHRONIC HEPATITIS C
     Dosage: 2250 mg, qd
     Route: 048
     Dates: start: 20120508, end: 20120731
  2. PEGINTERFERON ALFA-2B [Suspect]
     Indication: CHRONIC HEPATITIS C
     Dosage: 1.5 ?g/kg, UNK
     Route: 058
     Dates: start: 20120508, end: 20121023
  3. RIBAVIRIN [Suspect]
     Indication: HEPATITIS C
     Dosage: 800 mg, qd
     Route: 048
     Dates: start: 20120508, end: 20120730
  4. RIBAVIRIN [Suspect]
     Dosage: 400 mg, qd
     Dates: start: 20120731, end: 20121023
  5. URSO                               /00465701/ [Concomitant]
     Dosage: 600 mg, qd
  6. ETHYL ICOSAPENTATE [Concomitant]
     Dosage: 3 DF, qd
  7. NEXIUM                             /01479302/ [Concomitant]
     Dosage: 20 mg, qd
     Dates: start: 20120508
  8. BEPOTASTINE BESILATE [Concomitant]
     Dosage: 20 mg, qd
     Dates: start: 20120508
  9. VOLTAREN                           /00372301/ [Concomitant]
     Dosage: 25 mg, UNK
     Dates: start: 20120508
  10. HIRUDOID                           /00723701/ [Concomitant]
     Dosage: UNK, qd
     Dates: start: 20120512, end: 20120512
  11. LIDOMEX [Concomitant]
     Dosage: UNK, qd
     Dates: start: 20120611, end: 20120611
  12. DERMOVATE [Concomitant]
     Dosage: UNK, qd
     Dates: start: 20120621, end: 20120621
  13. LIVACT                             /00847901/ [Concomitant]
  14. PROMAC                             /00024401/ [Concomitant]
     Dosage: 225 mg, UNK
  15. AZUNOL #1 [Concomitant]
     Dosage: UNK
     Dates: end: 20121023
  16. ALMETA [Concomitant]
     Dosage: UNK
     Dates: end: 20121023
  17. BIO-THREE [Concomitant]
     Dosage: UNK

REACTIONS (2)
  - Rash [Recovered/Resolved]
  - Anaemia [Not Recovered/Not Resolved]
